FAERS Safety Report 10393282 (Version 1)
Quarter: 2014Q3

REPORT INFORMATION
  Report Type: Spontaneous
  Country: CN (occurrence: CN)
  Receive Date: 20140819
  Receipt Date: 20140819
  Transmission Date: 20150326
  Serious: Yes (Other)
  Sender: FDA-Public Use
  Company Number: CN-PFIZER INC-2014224490

PATIENT
  Age: 53 Year
  Sex: Female

DRUGS (2)
  1. GLUCOTROL XL [Suspect]
     Active Substance: GLIPIZIDE
     Indication: HYPERGLYCAEMIA
     Dosage: 1 TABLET, ONCE DAILY (5MG X 14 TABLET PER BOX)
     Route: 048
  2. GLUCOTROL XL [Suspect]
     Active Substance: GLIPIZIDE
     Dosage: UNK
     Route: 048

REACTIONS (3)
  - Fatigue [Unknown]
  - Drug ineffective [Recovered/Resolved]
  - Suspected counterfeit product [Unknown]
